FAERS Safety Report 24206953 (Version 7)
Quarter: 2025Q3

REPORT INFORMATION
  Report Type: Report from Study
  Country: US (occurrence: US)
  Receive Date: 20240813
  Receipt Date: 20250714
  Transmission Date: 20251021
  Serious: Yes (Hospitalization, Other)
  Sender: SUNOVION
  Company Number: US-SUMITOMO PHARMA SWITZERLAND GMBH-2024SPA000397

PATIENT

DRUGS (1)
  1. ORGOVYX [Suspect]
     Active Substance: RELUGOLIX
     Indication: Prostate cancer
     Dosage: 120 MG, QD
     Route: 048
     Dates: start: 20230831

REACTIONS (13)
  - Thrombosis [Unknown]
  - Gangrene [Unknown]
  - Blister infected [Unknown]
  - Surgery [Unknown]
  - Visual impairment [Unknown]
  - Cellulitis [Unknown]
  - Vision blurred [Unknown]
  - Skin texture abnormal [Unknown]
  - Overweight [Unknown]
  - Gait disturbance [Unknown]
  - Arthralgia [Unknown]
  - Blood glucose increased [Unknown]
  - Incorrect dose administered [Unknown]

NARRATIVE: CASE EVENT DATE: 20240529
